FAERS Safety Report 6879901-0 (Version None)
Quarter: 2010Q3

REPORT INFORMATION
  Report Type: 
  Country: None (occurrence: None)
  Receive Date: 20100728
  Receipt Date: 20100726
  Transmission Date: 20110219
  Serious: Yes (Other)
  Sender: FDA-Public Use
  Company Number: JP-ROXANE LABORATORIES, INC.-2010-RO-00915RO

PATIENT
  Age: 24 Year
  Sex: Female

DRUGS (3)
  1. RISPERIDONE [Suspect]
     Indication: SCHIZOPHRENIA
     Dosage: 2 MG
     Dates: start: 20040801
  2. RISPERIDONE [Suspect]
     Dosage: 4 MG
     Dates: end: 20090822
  3. BIPERIDEN HYDROCHLORIDE TAB [Suspect]
     Indication: MUSCLE CONTRACTIONS INVOLUNTARY
     Dosage: 6 MG
     Dates: start: 20070201

REACTIONS (3)
  - DRUG INEFFECTIVE [None]
  - DYSTONIA [None]
  - MUSCLE CONTRACTIONS INVOLUNTARY [None]
